FAERS Safety Report 4407733-1 (Version None)
Quarter: 2004Q3

REPORT INFORMATION
  Report Type: 
  Country: None (occurrence: None)
  Receive Date: 20040721
  Receipt Date: 20040707
  Transmission Date: 20050211
  Serious: Yes (Hospitalization)
  Sender: FDA-Public Use
  Company Number: 2004AP03688

PATIENT
  Sex: Male
  Weight: 64 kg

DRUGS (1)
  1. MEROPENEM [Suspect]
     Dosage: 3 G DAILY IV
     Route: 042
     Dates: start: 20030922, end: 20031007

REACTIONS (4)
  - MALAISE [None]
  - NEUTROPENIA [None]
  - NIGHT SWEATS [None]
  - PERICARDITIS [None]
